FAERS Safety Report 8860231 (Version 1)
Quarter: 2012Q4

REPORT INFORMATION
  Report Type: 
  Country: US (occurrence: US)
  Receive Date: 20121025
  Receipt Date: 20121025
  Transmission Date: 20130627
  Serious: No
  Sender: FDA-Public Use
  Company Number: US-009507513-1210USA010764

PATIENT
  Age: 89 Year
  Sex: Female

DRUGS (1)
  1. ZIOPTAN [Suspect]
     Indication: MACULAR DEGENERATION
     Dosage: 1 drop, qd
     Route: 047
     Dates: start: 20121020

REACTIONS (4)
  - Visual acuity reduced [Recovered/Resolved]
  - Eye pain [Recovered/Resolved]
  - Ocular hyperaemia [Recovered/Resolved]
  - Photophobia [Recovered/Resolved]
